FAERS Safety Report 18407885 (Version 7)
Quarter: 2021Q2

REPORT INFORMATION
  Report Type: Spontaneous
  Country: US (occurrence: US)
  Receive Date: 20201020
  Receipt Date: 20210414
  Transmission Date: 20210717
  Serious: Yes (Hospitalization, Congenital Anomaly, Other)
  Sender: FDA-Public Use
  Company Number: NVSC2020US280823

PATIENT
  Sex: Female

DRUGS (1)
  1. ZOFRAN [Suspect]
     Active Substance: ONDANSETRON HYDROCHLORIDE
     Indication: FOETAL EXPOSURE DURING PREGNANCY
     Dosage: MOTHER DOSE: 08 MG, BID
     Route: 064

REACTIONS (83)
  - Tricuspid valve stenosis [Unknown]
  - Left-to-right cardiac shunt [Unknown]
  - Sinus node dysfunction [Unknown]
  - Lactose intolerance [Unknown]
  - Weight gain poor [Unknown]
  - Dental caries [Unknown]
  - Left ventricular hypertrophy [Unknown]
  - Anxiety [Unknown]
  - Pain in extremity [Unknown]
  - Respiratory syncytial virus infection [Unknown]
  - Bradycardia [Unknown]
  - Foetal exposure during pregnancy [Unknown]
  - Pyrexia [Unknown]
  - Viral infection [Unknown]
  - Cardiac murmur [Unknown]
  - Left ventricular dilatation [Unknown]
  - Gastrooesophageal reflux disease [Unknown]
  - Abdominal pain [Unknown]
  - Limb injury [Unknown]
  - Dental plaque [Unknown]
  - Joint swelling [Unknown]
  - Ventricular septal defect [Unknown]
  - Hypoxia [Unknown]
  - Pericardial effusion [Unknown]
  - Fatigue [Unknown]
  - Arthralgia [Unknown]
  - Ear pain [Unknown]
  - Heart disease congenital [Unknown]
  - Ventricular hypoplasia [Unknown]
  - Atrioventricular block complete [Unknown]
  - Pulmonary valve stenosis [Unknown]
  - Rash [Unknown]
  - Torus fracture [Unknown]
  - Tachycardia [Unknown]
  - Tooth deposit [Unknown]
  - Nasal congestion [Unknown]
  - Soft tissue swelling [Unknown]
  - Atrial septal defect [Unknown]
  - Univentricular heart [Unknown]
  - Respiratory distress [Unknown]
  - Cough [Unknown]
  - Pharyngitis streptococcal [Unknown]
  - Rib fracture [Unknown]
  - Vomiting [Unknown]
  - Peripheral vein occlusion [Unknown]
  - Weight decreased [Unknown]
  - Cyanosis [Unknown]
  - Bundle branch block left [Unknown]
  - Oropharyngeal pain [Unknown]
  - Ocular hyperaemia [Unknown]
  - Eyelid margin crusting [Unknown]
  - Failure to thrive [Unknown]
  - Pulmonary valve incompetence [Unknown]
  - Pneumothorax [Unknown]
  - Injury [Unknown]
  - Otitis media [Unknown]
  - Cardiomegaly [Unknown]
  - Diarrhoea [Unknown]
  - Anaemia [Unknown]
  - Ligament sprain [Unknown]
  - Constipation [Unknown]
  - Chest pain [Recovered/Resolved]
  - Upper limb fracture [Unknown]
  - Scoliosis [Unknown]
  - Joint effusion [Unknown]
  - Congenital tricuspid valve atresia [Unknown]
  - Bronchiolitis [Unknown]
  - Pneumonia [Unknown]
  - Arrhythmia [Unknown]
  - Mitral valve incompetence [Unknown]
  - Aortic valve incompetence [Unknown]
  - Upper respiratory tract infection [Unknown]
  - Left atrial dilatation [Unknown]
  - Dyspnoea [Unknown]
  - Headache [Unknown]
  - Joint injury [Unknown]
  - Right-to-left cardiac shunt [Unknown]
  - Pleural effusion [Unknown]
  - Pulmonary oedema [Unknown]
  - Rhinorrhoea [Unknown]
  - Left atrial enlargement [Unknown]
  - Atelectasis [Unknown]
  - Pharyngitis [Unknown]
